FAERS Safety Report 9854790 (Version 1)
Quarter: 2014Q1

REPORT INFORMATION
  Report Type: Spontaneous
  Country: US (occurrence: US)
  Receive Date: 20140130
  Receipt Date: 20140130
  Transmission Date: 20141002
  Serious: No
  Sender: FDA-Public Use
  Company Number: US-PFIZER INC-2014024597

PATIENT
  Age: 33 Year
  Sex: Male
  Weight: 88.44 kg

DRUGS (4)
  1. ADVIL PM [Suspect]
     Indication: SOMNOLENCE
     Dosage: 2 PILLS,  UNK
     Dates: start: 20140118, end: 20140119
  2. ADVIL PM [Suspect]
     Indication: ANALGESIC THERAPY
  3. HYDROXYZINE [Concomitant]
     Indication: ANXIETY
     Dosage: 25 MG, AS NEEDED
  4. HYDROXYZINE [Concomitant]
     Indication: INSOMNIA

REACTIONS (1)
  - Blood alcohol increased [Unknown]
